FAERS Safety Report 22743998 (Version 7)
Quarter: 2025Q1

REPORT INFORMATION
  Report Type: Report from Study
  Country: US (occurrence: US)
  Receive Date: 20230724
  Receipt Date: 20250319
  Transmission Date: 20250409
  Serious: Yes (Hospitalization, Other)
  Sender: TAKEDA
  Company Number: US-TAKEDA-US202020989

PATIENT
  Age: 73 Year
  Sex: Female

DRUGS (3)
  1. HUMAN IMMUNOGLOBULIN G [Suspect]
     Active Substance: HUMAN IMMUNOGLOBULIN G
     Indication: Primary immunodeficiency syndrome
     Dosage: 11 GRAM, 1/WEEK
  2. HUMAN IMMUNOGLOBULIN G [Suspect]
     Active Substance: HUMAN IMMUNOGLOBULIN G
     Indication: Secondary immunodeficiency
     Dosage: 10 GRAM, 1/WEEK
  3. HUMAN IMMUNOGLOBULIN G [Suspect]
     Active Substance: HUMAN IMMUNOGLOBULIN G

REACTIONS (17)
  - Atrial fibrillation [Unknown]
  - Blood pressure decreased [Unknown]
  - Nephrolithiasis [Unknown]
  - Haemorrhage [Unknown]
  - Wheezing [Recovering/Resolving]
  - Pulmonary embolism [Recovering/Resolving]
  - Procedural dizziness [Unknown]
  - Stress fracture [Unknown]
  - COVID-19 [Not Recovered/Not Resolved]
  - Post-acute COVID-19 syndrome [Not Recovered/Not Resolved]
  - Haematoma [Unknown]
  - Fall [Unknown]
  - Foot fracture [Unknown]
  - Infusion related hypersensitivity reaction [Unknown]
  - Asthma [Unknown]
  - Rash pruritic [Unknown]
  - Back pain [Unknown]

NARRATIVE: CASE EVENT DATE: 20200626
